FAERS Safety Report 5841594-9 (Version None)
Quarter: 2008Q3

REPORT INFORMATION
  Report Type: 
  Country: None (occurrence: None)
  Receive Date: 20080812
  Receipt Date: 20080804
  Transmission Date: 20090109
  Serious: Yes (Other)
  Sender: FDA-Public Use
  Company Number: US-BAYER-200813221BCC

PATIENT
  Age: 92 Year
  Sex: Female
  Weight: 48 kg

DRUGS (9)
  1. PHILLIPS MILK OF MAGNESIA CHERRY [Suspect]
     Indication: CONSTIPATION
     Dosage: UNIT DOSE: 15 ML
     Route: 048
     Dates: start: 20080716
  2. EQUATE CALCIUM SUPPLEMENT [Concomitant]
  3. LEVOPHYROVINE [Concomitant]
  4. CETIRIZINE HYDROCHLORIDE [Concomitant]
  5. CLONIDINE [Concomitant]
  6. LASIC [Concomitant]
  7. ARICPET [Concomitant]
  8. LORAZEPAM [Concomitant]
  9. AMLODIPINE [Concomitant]

REACTIONS (1)
  - BLOOD GLUCOSE INCREASED [None]
